FAERS Safety Report 13647647 (Version 1)
Quarter: 2017Q2

REPORT INFORMATION
  Report Type: Spontaneous
  Country: IR (occurrence: IR)
  Receive Date: 20170613
  Receipt Date: 20170613
  Transmission Date: 20170830
  Serious: Yes (Death, Other)
  Sender: FDA-Public Use
  Company Number: IR-009507513-1705IRN009920

PATIENT
  Age: 76 Year
  Sex: Male

DRUGS (5)
  1. AMPICILLIN AND SULBACTAM [Concomitant]
     Active Substance: AMPICILLIN SODIUM\SULBACTAM SODIUM
     Indication: NOSOCOMIAL INFECTION
  2. VANCOMYCIN [Concomitant]
     Active Substance: VANCOMYCIN
     Indication: NOSOCOMIAL INFECTION
  3. CLINDAMYCIN. [Concomitant]
     Active Substance: CLINDAMYCIN
     Indication: NOSOCOMIAL INFECTION
  4. IMIPENEM AND CILASTATIN [Suspect]
     Active Substance: CILASTATIN SODIUM\IMIPENEM
     Indication: KLEBSIELLA INFECTION
     Dosage: UNK
  5. IMIPENEM AND CILASTATIN [Suspect]
     Active Substance: CILASTATIN SODIUM\IMIPENEM
     Indication: NOSOCOMIAL INFECTION

REACTIONS (2)
  - Pathogen resistance [Unknown]
  - Therapy non-responder [Fatal]
